FAERS Safety Report 8143594-5 (Version None)
Quarter: 2012Q1

REPORT INFORMATION
  Report Type: 
  Country: None (occurrence: None)
  Receive Date: 20120217
  Receipt Date: 20111120
  Transmission Date: 20120608
  Serious: No
  Sender: FDA-Public Use
  Company Number: US-GLAXOSMITHKLINE-A0955304A

PATIENT
  Sex: Male

DRUGS (3)
  1. FLECAINIDE ACETATE [Concomitant]
     Indication: ATRIAL FIBRILLATION
  2. VOTRIENT [Suspect]
     Indication: RENAL CELL CARCINOMA
     Route: 048
  3. ARMODAFINIL [Concomitant]
     Indication: CANDIDIASIS

REACTIONS (2)
  - CANDIDIASIS [None]
  - DECREASED APPETITE [None]
